FAERS Safety Report 7597159-4 (Version None)
Quarter: 2011Q3

REPORT INFORMATION
  Report Type: 
  Country: None (occurrence: None)
  Receive Date: 20110708
  Receipt Date: 20100618
  Transmission Date: 20111222
  Serious: No
  Sender: FDA-Public Use
  Company Number: US-GLAXOSMITHKLINE-A0866104A

PATIENT
  Sex: Female

DRUGS (1)
  1. FLOVENT [Suspect]

REACTIONS (1)
  - BACK PAIN [None]
